FAERS Safety Report 5257015-3 (Version None)
Quarter: 2007Q1

REPORT INFORMATION
  Report Type: 
  Country: None (occurrence: None)
  Receive Date: 20070302
  Receipt Date: 20070216
  Transmission Date: 20070707
  Serious: Yes (Hospitalization, Other)
  Sender: FDA-Public Use
  Company Number: 010888

PATIENT
  Age: 69 Year
  Sex: Female
  Weight: 49.4 kg

DRUGS (2)
  1. WARFARIN SODIUM [Suspect]
     Indication: ANTICOAGULANT THERAPY
     Dosage: 3 MG QD ORAL
     Route: 048
     Dates: start: 19990201
  2. LORAZEPAM [Concomitant]

REACTIONS (6)
  - CHOLELITHIASIS [None]
  - DRUG EFFECT DECREASED [None]
  - HEART RATE IRREGULAR [None]
  - INTERNATIONAL NORMALISED RATIO INCREASED [None]
  - PRURITUS [None]
  - URTICARIA [None]
